FAERS Safety Report 5087841-5 (Version None)
Quarter: 2006Q3

REPORT INFORMATION
  Report Type: 
  Country: None (occurrence: None)
  Receive Date: 20060821
  Receipt Date: 20060821
  Transmission Date: 20061208
  Serious: Yes (Other)
  Sender: FDA-Public Use
  Company Number: None

PATIENT
  Sex: Female
  Weight: 45.8133 kg

DRUGS (8)
  1. OXALIPLATIN [Suspect]
     Indication: CARCINOID TUMOUR
     Dosage: 120 MG Q2WEEKS IV
     Route: 042
     Dates: start: 20060726
  2. BEVACIZUMAB, 5 MG/KG, GENENTECH (BB-IND 12125) [Suspect]
     Indication: CARCINOID TUMOUR
     Dosage: 230 MG QS Q2WEEKS IV
     Route: 042
     Dates: start: 20060726
  3. FLUOROURACIL [Suspect]
     Indication: CARCINOID TUMOUR
     Dosage: 576 MG + 3456 MG Q2WEEKS IV
     Route: 042
     Dates: start: 20060726
  4. LOMOTIL [Concomitant]
  5. DECADRON [Concomitant]
  6. LORAZEPAM [Concomitant]
  7. GRANISETRON [Concomitant]
  8. OCTREOTIDE ACETATE [Concomitant]

REACTIONS (2)
  - NEUTROPENIA [None]
  - WHITE BLOOD CELL COUNT DECREASED [None]
